FAERS Safety Report 4708831-5 (Version None)
Quarter: 2005Q3

REPORT INFORMATION
  Report Type: 
  Country: None (occurrence: None)
  Receive Date: 20050705
  Receipt Date: 20050629
  Transmission Date: 20060218
  Serious: Yes (Hospitalization)
  Sender: FDA-Public Use
  Company Number: A044-002-005661

PATIENT
  Sex: Female

DRUGS (5)
  1. ARICEPT [Suspect]
     Indication: DEMENTIA
     Dosage: ORAL
     Route: 048
     Dates: start: 20041207, end: 20041216
  2. BAYOTENSIN (NITRENDIPINE) [Concomitant]
  3. ACETAMINOPHEN [Concomitant]
  4. OXAZEPAM [Concomitant]
  5. ^BRONCHIAL TEA^ [Concomitant]

REACTIONS (4)
  - AORTIC VALVE STENOSIS [None]
  - ARRHYTHMIA [None]
  - BRADYCARDIA [None]
  - HYPERTENSION [None]
